FAERS Safety Report 12877522 (Version 2)
Quarter: 2018Q3

REPORT INFORMATION
  Report Type: Spontaneous
  Country: US (occurrence: US)
  Receive Date: 20161024
  Receipt Date: 20180927
  Transmission Date: 20181010
  Serious: Yes (Other)
  Sender: FDA-Public Use
  Company Number: PHEH2016US027186

PATIENT

DRUGS (1)
  1. ENTRESTO [Suspect]
     Active Substance: SACUBITRIL\VALSARTAN
     Indication: PRODUCT USED FOR UNKNOWN INDICATION
     Dosage: 50 MG, BID
     Route: 048

REACTIONS (1)
  - Angioedema [Unknown]
